FAERS Safety Report 17727956 (Version 1)
Quarter: 2020Q2

REPORT INFORMATION
  Report Type: Spontaneous
  Country: US (occurrence: US)
  Receive Date: 20200430
  Receipt Date: 20200430
  Transmission Date: 20200714
  Serious: No
  Sender: FDA-Public Use
  Company Number: US-VISTAPHARM, INC.-VER201912-001483

PATIENT
  Age: 71 Year
  Sex: Female
  Weight: 50.8 kg

DRUGS (14)
  1. PANTOPRAZOLE [Concomitant]
     Active Substance: PANTOPRAZOLE
     Indication: CHRONIC GASTRITIS
     Dosage: 20 MG 1 TIME PER DAY (AS NEEDED)
     Dates: start: 2014
  2. BIOTIN [Concomitant]
     Active Substance: BIOTIN
     Indication: NAIL DISORDER
     Dosage: 1000 MG ONE TIMES PER DAY
  3. ACETAMINOPHEN SR [Concomitant]
     Indication: BACK PAIN
  4. PEPCID [Concomitant]
     Active Substance: FAMOTIDINE
     Indication: GASTROOESOPHAGEAL REFLUX DISEASE
     Dosage: 1/2 TABLET AS PER NEEDED
     Dates: start: 2017
  5. TOPAMAX [Concomitant]
     Active Substance: TOPIRAMATE
     Indication: MIGRAINE
     Dosage: 50 MG TWO TIMES PER DAY
  6. ACETAMINOPHEN SR [Concomitant]
     Indication: ARTHRALGIA
     Dosage: 500 MG (AS PER NEEDED)
  7. CENTRUM SILVER NON-GMO MULTIVITAMIN [Concomitant]
     Indication: NUTRITIONAL SUPPLEMENTATION
     Dosage: 1 TIMES PER DAY (AS PER NEEDED)
  8. NYSTATIN. [Suspect]
     Active Substance: NYSTATIN
     Indication: CANDIDA INFECTION
     Dosage: 100,000 UNITS/ML (5 ML SWISH AND SWALLOW THREE TIMES A DAY)
     Dates: start: 20191107
  9. PEPCID [Concomitant]
     Active Substance: FAMOTIDINE
     Indication: DYSPEPSIA
  10. NYSTATIN. [Suspect]
     Active Substance: NYSTATIN
     Dosage: 5 ML THREE TIMES A DAY
  11. FAMOTIDINE. [Concomitant]
     Active Substance: FAMOTIDINE
     Indication: DYSPEPSIA
     Dosage: 40 MG TWO TIMES A DAY
     Dates: start: 1998
  12. VALACYCLOVIR [Concomitant]
     Active Substance: VALACYCLOVIR HYDROCHLORIDE
     Indication: CHEILITIS
     Dosage: 500 MG TWO TIMES PER DAY
  13. FAMOTIDINE. [Concomitant]
     Active Substance: FAMOTIDINE
     Indication: GASTROOESOPHAGEAL REFLUX DISEASE
  14. FIBERCON GENERIC [Concomitant]
     Indication: PRODUCT USED FOR UNKNOWN INDICATION
     Dosage: WITH WATER AFTER MEALS

REACTIONS (4)
  - Product taste abnormal [Unknown]
  - Product preparation issue [Unknown]
  - Drug ineffective [Recovering/Resolving]
  - Product colour issue [Unknown]
